FAERS Safety Report 5299302-9 (Version None)
Quarter: 2007Q2

REPORT INFORMATION
  Report Type: 
  Country: None (occurrence: None)
  Receive Date: 20070410
  Receipt Date: 20060719
  Transmission Date: 20071010
  Serious: Yes (Other)
  Sender: FDA-Public Use
  Company Number: BDI-008370

PATIENT
  Age: 83 Year
  Sex: Female
  Weight: 45.45 kg

DRUGS (3)
  1. ISOVUE-M 200 [Suspect]
     Indication: BACK PAIN
     Dosage: 19 ML ONCE IT
     Dates: start: 20060621, end: 20060621
  2. ISOVUE-M 200 [Suspect]
     Indication: PAIN IN EXTREMITY
     Dosage: 19 ML ONCE IT
     Dates: start: 20060621, end: 20060621
  3. ISOVUE-M 200 [Suspect]
     Indication: SPINAL MYELOGRAM
     Dosage: 19 ML ONCE IT
     Dates: start: 20060621, end: 20060621

REACTIONS (9)
  - BRAIN OEDEMA [None]
  - CONTRAST MEDIA REACTION [None]
  - FAECAL INCONTINENCE [None]
  - FOOD POISONING [None]
  - HYPOTONIA [None]
  - LOSS OF CONSCIOUSNESS [None]
  - NAUSEA [None]
  - PAIN IN EXTREMITY [None]
  - VOMITING [None]
